FAERS Safety Report 4760625-0 (Version None)
Quarter: 2005Q3

REPORT INFORMATION
  Report Type: 
  Country: None (occurrence: None)
  Receive Date: 20050902
  Receipt Date: 20010718
  Transmission Date: 20060218
  Serious: Yes (Hospitalization)
  Sender: FDA-Public Use
  Company Number: 10919546

PATIENT
  Age: 15 Day
  Sex: Male
  Weight: 3 kg

DRUGS (5)
  1. ZERIT [Suspect]
     Dosage: FROM WEEK 33 OF GESTATION TO DELIVERY
     Route: 064
     Dates: end: 20001026
  2. ZERIT [Suspect]
     Dosage: 1 MG/ML SYRUP
     Route: 048
     Dates: start: 20001026, end: 20001122
  3. VIDEX [Suspect]
     Dosage: FROM WEEK 33 OF GESTATION TO DELIVERY
     Route: 064
     Dates: end: 20001026
  4. RETROVIR [Suspect]
     Dosage: INFUSION AT DELIVERY, 200 MG/20 ML SOLUTION
     Route: 064
     Dates: start: 20001026, end: 20001026
  5. DAFALGAN [Concomitant]
     Dosage: EXPOSURE DURING GESTATION.
     Route: 064

REACTIONS (8)
  - ANAEMIA [None]
  - BLOOD LACTIC ACID INCREASED [None]
  - CAESAREAN SECTION [None]
  - DRUG EXPOSURE DURING PREGNANCY [None]
  - DRY SKIN [None]
  - HYPERTONIA [None]
  - NEONATAL DISORDER [None]
  - PLATELET COUNT INCREASED [None]
